FAERS Safety Report 14120718 (Version 2)
Quarter: 2017Q4

REPORT INFORMATION
  Report Type: Spontaneous
  Country: MX (occurrence: MX)
  Receive Date: 20171024
  Receipt Date: 20171031
  Transmission Date: 20180321
  Serious: Yes (Other)
  Sender: FDA-Public Use
  Company Number: MX-GLENMARK PHARMACEUTICALS-2017GMK029221

PATIENT

DRUGS (3)
  1. EUKOMIKANE [Suspect]
     Active Substance: VORICONAZOLE
     Indication: VULVOVAGINAL CANDIDIASIS
     Dosage: 200 MG, BID
     Route: 048
     Dates: start: 20170928, end: 20171007
  2. VFEND [Suspect]
     Active Substance: VORICONAZOLE
     Dosage: 200 MG, OD
     Route: 048
     Dates: start: 20170924, end: 20170927
  3. VFEND [Suspect]
     Active Substance: VORICONAZOLE
     Indication: VULVITIS
     Dosage: UNK, LOADING DOSE
     Route: 048
     Dates: start: 20170923

REACTIONS (7)
  - Inflammation [Unknown]
  - Haemorrhage [Recovered/Resolved]
  - Photosensitivity reaction [Recovering/Resolving]
  - Dizziness [Recovered/Resolved]
  - Infection [Unknown]
  - Vaginal discharge [Unknown]
  - Pain [Recovered/Resolved]

NARRATIVE: CASE EVENT DATE: 20170925
